FAERS Safety Report 19745586 (Version 2)
Quarter: 2025Q2

REPORT INFORMATION
  Report Type: Spontaneous
  Country: FI (occurrence: FI)
  Receive Date: 20210825
  Receipt Date: 20250602
  Transmission Date: 20250716
  Serious: Yes (Hospitalization)
  Sender: ROCHE
  Company Number: FI-ACCORD-235462

PATIENT
  Age: 64 Year
  Sex: Female
  Weight: 60.0 kg

DRUGS (12)
  1. RITUXIMAB [Suspect]
     Active Substance: RITUXIMAB
     Indication: Follicular lymphoma stage III
     Route: 042
     Dates: start: 20210601, end: 20210601
  2. RITUXIMAB [Suspect]
     Active Substance: RITUXIMAB
     Route: 042
     Dates: start: 20210525, end: 20210525
  3. LENALIDOMIDE [Suspect]
     Active Substance: LENALIDOMIDE
     Indication: Follicular lymphoma stage III
     Dosage: STRENGTH: 20 MILLIGRAM, QD
     Route: 048
     Dates: start: 20210525, end: 20210601
  4. PREDNISOLONE [Suspect]
     Active Substance: PREDNISOLONE
     Indication: Cytokine release syndrome
     Dosage: STRENGTH: 100 MILLIGRAM, QD
     Route: 048
     Dates: start: 20210525, end: 20210528
  5. PREDNISOLONE [Suspect]
     Active Substance: PREDNISOLONE
     Dosage: STRENGTH: 100 MILLIGRAM, QD
     Route: 048
     Dates: start: 20210531, end: 20210604
  6. ACETAMINOPHEN [Concomitant]
     Active Substance: ACETAMINOPHEN
     Dates: start: 20210626
  7. ACETAMINOPHEN [Concomitant]
     Active Substance: ACETAMINOPHEN
     Route: 048
     Dates: start: 20210601, end: 20210601
  8. VALACYCLOVIR HYDROCHLORIDE [Concomitant]
     Active Substance: VALACYCLOVIR HYDROCHLORIDE
     Dates: start: 20210609
  9. CETIRIZINE [Concomitant]
     Active Substance: CETIRIZINE HYDROCHLORIDE
     Route: 048
     Dates: start: 20210601, end: 20210601
  10. INNOHEP [Concomitant]
     Active Substance: TINZAPARIN SODIUM
     Dates: start: 20210318
  11. FLUCONAZOLE [Concomitant]
     Active Substance: FLUCONAZOLE
     Dates: start: 20210609
  12. NYSTATIN [Concomitant]
     Active Substance: NYSTATIN
     Dates: start: 20210608, end: 20210611

REACTIONS (2)
  - Mania [Recovered/Resolved]
  - Cytokine release syndrome [Recovered/Resolved]

NARRATIVE: CASE EVENT DATE: 20210605
